FAERS Safety Report 5158936-2 (Version None)
Quarter: 2006Q4

REPORT INFORMATION
  Report Type: 
  Country: None (occurrence: None)
  Receive Date: 20061128
  Receipt Date: 20051229
  Transmission Date: 20070319
  Serious: Yes (Death, Hospitalization, Other)
  Sender: FDA-Public Use
  Company Number: GB-BRISTOL-MYERS SQUIBB COMPANY-13234752

PATIENT
  Age: 50 Year
  Sex: Male

DRUGS (3)
  1. VIDEX [Suspect]
     Route: 048
     Dates: start: 20041101
  2. TENOFOVIR [Concomitant]
     Dates: start: 20041101
  3. ZIDOVUDINE [Concomitant]
     Dates: start: 20050701

REACTIONS (2)
  - LACTIC ACIDOSIS [None]
  - RENAL FAILURE ACUTE [None]
